FAERS Safety Report 5859829-5 (Version None)
Quarter: 2008Q3

REPORT INFORMATION
  Report Type: 
  Country: None (occurrence: None)
  Receive Date: 20080827
  Receipt Date: 20080818
  Transmission Date: 20090109
  Serious: Yes (Death)
  Sender: FDA-Public Use
  Company Number: KP-WATSON-2008-04961

PATIENT
  Age: 58 Year
  Sex: Female

DRUGS (4)
  1. COLCHICINE (WATSON LABORATORIES) [Suspect]
     Indication: BEHCET'S SYNDROME
     Dosage: 1.2 MG, DAILY
     Route: 048
     Dates: start: 20070101
  2. PREDNISOLONE ACETATE [Suspect]
     Indication: BEHCET'S SYNDROME
     Dosage: UNK
     Route: 048
     Dates: start: 20070101
  3. PREDNISOLONE ACETATE [Suspect]
     Dosage: UNK
     Route: 048
     Dates: start: 20050101, end: 20070101
  4. AZATHIOPRINE [Suspect]
     Indication: BEHCET'S SYNDROME
     Dosage: UNK
     Route: 065
     Dates: start: 20050101, end: 20070101

REACTIONS (2)
  - DRUG INTERACTION [None]
  - LEUKOPENIA [None]
